FAERS Safety Report 6928264-0 (Version None)
Quarter: 2010Q3

REPORT INFORMATION
  Report Type: 
  Country: None (occurrence: None)
  Receive Date: 20100817
  Receipt Date: 20100809
  Transmission Date: 20110219
  Serious: Yes (Other)
  Sender: FDA-Public Use
  Company Number: GR-ROCHE-719787

PATIENT

DRUGS (6)
  1. MYCOPHENOLATE MOFETIL [Suspect]
     Dosage: MEAN DAILY DOSE: 1395.8 PLUS OR MINUS 416.4 (1000- 2000)MG
     Route: 065
  2. BASILIXIMAB [Suspect]
     Dosage: INDUCTION THERAPY
     Route: 065
  3. STEROID NOS [Suspect]
     Route: 065
  4. CYCLOSPORINE [Suspect]
     Dosage: DRUG:CYCLOSPORINE, MEAN DAILY DOSE: 154.41 PLUS OR MINUS 44.4 (100- 250)MG
     Route: 065
  5. TACROLIMUS [Suspect]
     Dosage: MEAN DAILY DOSE: 3.16 PLUS OR MINUS 2.26 (1- 10)MG
     Route: 065
  6. EVEROLIMUS [Suspect]
     Dosage: MEAN DAILT DOSE: 2.3 PLUS OR MINUS 0.77 (1- 3.5)MG
     Route: 065

REACTIONS (3)
  - DIARRHOEA [None]
  - LEUKOPENIA [None]
  - TRANSPLANT REJECTION [None]
